FAERS Safety Report 9819124 (Version 2)
Quarter: 2014Q1

REPORT INFORMATION
  Report Type: Report from Study
  Country: CA (occurrence: CA)
  Receive Date: 20140115
  Receipt Date: 20140115
  Transmission Date: 20141002
  Serious: Yes (Other)
  Sender: FDA-Public Use
  Company Number: CA-BRISTOL-MYERS SQUIBB COMPANY-15507064

PATIENT
  Age: 62 Year
  Sex: Male

DRUGS (14)
  1. ORENCIA [Suspect]
     Indication: RHEUMATOID ARTHRITIS
     Dosage: NO OF INF:23?LAST INF:22JAN11,30JAN2012(Q4 WEEKS),7APR12,01OCT12?2D73510,AL15?3F74896,MAY2016
     Route: 042
     Dates: start: 20110109
  2. ARAVA [Concomitant]
  3. SULINDAC [Concomitant]
  4. METHOTREXATE TABS [Concomitant]
     Dosage: 2.5 MG 6 TAB
  5. OMEPRAZOLE [Concomitant]
  6. FOLIC ACID [Concomitant]
     Dosage: MON/WED/FRI
  7. LIPITOR [Concomitant]
  8. ENALAPRIL [Concomitant]
  9. FELODIPINE [Concomitant]
  10. LIPITOR [Concomitant]
  11. HYDROCHLOROTHIAZIDE [Concomitant]
  12. VITAMIN B12 [Concomitant]
  13. VITAMIN D [Concomitant]
  14. CALCIUM [Concomitant]

REACTIONS (6)
  - Pneumonia [Unknown]
  - Osteoarthritis [Unknown]
  - Nasal congestion [Unknown]
  - Nasopharyngitis [Unknown]
  - Rhinorrhoea [Unknown]
  - Cough [Unknown]
